FAERS Safety Report 17187226 (Version 1)
Quarter: 2019Q4

REPORT INFORMATION
  Report Type: Spontaneous
  Country: GB (occurrence: GB)
  Receive Date: 20191220
  Receipt Date: 20191220
  Transmission Date: 20200122
  Serious: Yes (Disabling, Other)
  Sender: FDA-Public Use
  Company Number: GB-BAUSCH-BL-2019-065410

PATIENT
  Age: 51 Year
  Sex: Female
  Weight: 60 kg

DRUGS (3)
  1. VENTOLIN [Concomitant]
     Active Substance: ALBUTEROL SULFATE
     Indication: PRODUCT USED FOR UNKNOWN INDICATION
  2. ZAPAIN [Concomitant]
     Active Substance: ACETAMINOPHEN\CODEINE PHOSPHATE
     Indication: PRODUCT USED FOR UNKNOWN INDICATION
  3. PREDNISOLONE. [Suspect]
     Active Substance: PREDNISOLONE
     Indication: CROHN^S DISEASE
     Route: 048
     Dates: start: 201505, end: 201508

REACTIONS (21)
  - Tremor [Recovered/Resolved]
  - Asthma [Unknown]
  - Nasal polyps [Recovered/Resolved]
  - Swollen tongue [Recovered/Resolved]
  - Menorrhagia [Unknown]
  - Palpitations [Recovered/Resolved]
  - Anxiety [Recovered/Resolved]
  - Rubber sensitivity [Unknown]
  - Uveitis [Recovered/Resolved]
  - Cellulitis [Recovered/Resolved]
  - Mania [Recovered/Resolved]
  - Dyspnoea [Recovered/Resolved]
  - Cataract [Unknown]
  - Insomnia [Recovered/Resolved]
  - Menstruation irregular [Recovered/Resolved]
  - Vision blurred [Recovered/Resolved]
  - Depression [Recovered/Resolved]
  - Food allergy [Unknown]
  - Rash [Recovered/Resolved]
  - Syncope [Recovered/Resolved]
  - Hyperhidrosis [Recovered/Resolved]

NARRATIVE: CASE EVENT DATE: 201505
